FAERS Safety Report 14480310 (Version 1)
Quarter: 2018Q1

REPORT INFORMATION
  Report Type: Spontaneous
  Country: DE (occurrence: DE)
  Receive Date: 20180202
  Receipt Date: 20180202
  Transmission Date: 20180509
  Serious: Yes (Hospitalization, Other)
  Sender: FDA-Public Use
  Company Number: DE-MYLANLABS-2018M1005963

PATIENT
  Age: 63 Year
  Sex: Male
  Weight: 143.4 kg

DRUGS (12)
  1. CLINDAMYCIN. [Suspect]
     Active Substance: CLINDAMYCIN
     Indication: SEPSIS
     Route: 042
  2. ALBIGLUTIDE [Suspect]
     Active Substance: ALBIGLUTIDE
     Indication: TYPE 2 DIABETES MELLITUS
     Dosage: UNK UNK, WE
     Route: 058
     Dates: start: 20150806, end: 20151119
  3. ALBIGLUTIDE [Suspect]
     Active Substance: ALBIGLUTIDE
     Dosage: UNK UNK, WE
     Route: 058
     Dates: start: 20160527
  4. CIPROFLOXACIN. [Suspect]
     Active Substance: CIPROFLOXACIN
     Indication: SEPSIS
     Dosage: 1000 MG, QD
     Route: 048
     Dates: start: 20160525, end: 20160620
  5. PLACEBO [Suspect]
     Active Substance: UNSPECIFIED INGREDIENT
     Indication: TYPE 2 DIABETES MELLITUS
     Dosage: 1UNK UNK, WE
     Route: 058
     Dates: start: 20150806, end: 20151119
  6. PLACEBO [Suspect]
     Active Substance: UNSPECIFIED INGREDIENT
     Dosage: 1UNK UNK, WE
     Route: 058
     Dates: start: 20151214, end: 20160128
  7. PLACEBO [Suspect]
     Active Substance: UNSPECIFIED INGREDIENT
     Dosage: UNK UNK, WE
     Route: 058
     Dates: start: 20160210, end: 20160505
  8. PLACEBO [Suspect]
     Active Substance: UNSPECIFIED INGREDIENT
     Dosage: 1UNK UNK, WE
     Route: 058
     Dates: start: 20160527
  9. ALBIGLUTIDE [Suspect]
     Active Substance: ALBIGLUTIDE
     Dosage: UNK UNK, WE
     Route: 058
     Dates: start: 20151214, end: 20160128
  10. HYDROMORPHONE [Suspect]
     Active Substance: HYDROMORPHONE
     Indication: ERYSIPELAS
     Route: 048
     Dates: start: 20160512, end: 20160527
  11. ALBIGLUTIDE [Suspect]
     Active Substance: ALBIGLUTIDE
     Dosage: UNK UNK, WE
     Route: 058
     Dates: start: 20160210, end: 20160505
  12. PIPERACILLIN/TAZOBACTAM [Suspect]
     Active Substance: PIPERACILLIN SODIUM\TAZOBACTAM SODIUM
     Indication: SEPSIS
     Route: 042

REACTIONS (1)
  - Erysipelas [Recovered/Resolved]

NARRATIVE: CASE EVENT DATE: 20160512
